FAERS Safety Report 10866567 (Version 1)
Quarter: 2015Q1

REPORT INFORMATION
  Report Type: Spontaneous
  Country: US (occurrence: None)
  Receive Date: 20150220
  Receipt Date: 20150220
  Transmission Date: 20150721
  Serious: No
  Sender: FDA-Public Use
  Company Number: None

PATIENT
  Age: 7 Year
  Sex: Male
  Weight: 30.39 kg

DRUGS (4)
  1. GUANFACINE. [Suspect]
     Active Substance: GUANFACINE
     Dosage: 1 PILL ONCE AT BEDTIME
     Route: 048
     Dates: start: 20140825, end: 20140915
  2. GUANFACINE. [Suspect]
     Active Substance: GUANFACINE
     Indication: AUTISM
     Dosage: 1 PILL ONCE AT BEDTIME
     Route: 048
     Dates: start: 20140825, end: 20140915
  3. MELATONIN [Concomitant]
     Active Substance: MELATONIN
  4. RISPERIDONE. [Suspect]
     Active Substance: RISPERIDONE
     Indication: ATTENTION DEFICIT/HYPERACTIVITY DISORDER
     Dosage: 1/2 IN MORNING
     Route: 048

REACTIONS (2)
  - Product substitution issue [None]
  - Drug ineffective [None]

NARRATIVE: CASE EVENT DATE: 20140902
